FAERS Safety Report 4731301-5 (Version None)
Quarter: 2005Q3

REPORT INFORMATION
  Report Type: 
  Country: None (occurrence: None)
  Receive Date: 20050802
  Receipt Date: 20050721
  Transmission Date: 20060218
  Serious: Yes (Hospitalization)
  Sender: FDA-Public Use
  Company Number: JP-NOVOPROD-245736

PATIENT
  Age: 57 Year
  Sex: Male
  Weight: 55 kg

DRUGS (12)
  1. HUMALOG [Concomitant]
     Route: 058
     Dates: start: 20050609
  2. NOVOLIN R [Suspect]
     Indication: DIABETES MELLITUS
     Dosage: 8+8+8+0
     Route: 058
     Dates: start: 20050121, end: 20050524
  3. NOVOLIN R [Suspect]
     Dosage: 7+7+7+0
     Dates: start: 20050525, end: 20050601
  4. NOVOLIN R [Suspect]
     Dosage: 5+7+5+0
     Dates: start: 20050602, end: 20050608
  5. NOVOLIN R [Suspect]
     Dosage: UNK, TID
     Dates: start: 20041201, end: 20050120
  6. PENFILL N CHU [Concomitant]
     Dosage: 5 IU, QD
     Dates: start: 20050602
  7. LANTUS [Concomitant]
     Dosage: 5+0+0+4
     Route: 058
     Dates: start: 20040701, end: 20041201
  8. LANTUS [Concomitant]
     Dosage: 6 IU, QD
     Dates: start: 20050121, end: 20050524
  9. LANTUS [Concomitant]
     Dosage: 0+0+0+5
     Dates: start: 20050525, end: 20050601
  10. LANTUS [Concomitant]
     Dosage: UNK, QD
     Dates: start: 20041201, end: 20050120
  11. MAGNESIUM OXIDE [Concomitant]
     Dosage: 3 G, UNK
     Route: 048
  12. PURSENNID                               /SCH/ [Concomitant]
     Route: 048

REACTIONS (4)
  - ALANINE AMINOTRANSFERASE INCREASED [None]
  - ASPARTATE AMINOTRANSFERASE INCREASED [None]
  - DIABETES MELLITUS INADEQUATE CONTROL [None]
  - HEPATIC FUNCTION ABNORMAL [None]
